FAERS Safety Report 12082303 (Version 1)
Quarter: 2016Q1

REPORT INFORMATION
  Report Type: Spontaneous
  Country: FR (occurrence: FR)
  Receive Date: 20160217
  Receipt Date: 20160217
  Transmission Date: 20160526
  Serious: Yes (Other)
  Sender: FDA-Public Use
  Company Number: FR-TEVA-635708ACC

PATIENT
  Age: 62 Year
  Sex: Female

DRUGS (9)
  1. PARACETAMOL [Concomitant]
     Active Substance: ACETAMINOPHEN
     Indication: PAIN
     Route: 042
     Dates: start: 20151110, end: 20151111
  2. ONDANSETRON [Concomitant]
     Active Substance: ONDANSETRON
     Indication: PROPHYLAXIS OF NAUSEA AND VOMITING
     Route: 042
     Dates: start: 20151110, end: 20151111
  3. EMEND [Concomitant]
     Active Substance: APREPITANT
     Indication: PROPHYLAXIS OF NAUSEA AND VOMITING
     Route: 048
     Dates: start: 20151110, end: 20151113
  4. LEVACT [Suspect]
     Active Substance: BENDAMUSTINE HYDROCHLORIDE
     Indication: MANTLE CELL LYMPHOMA STAGE IV
     Dosage: 120 MILLIGRAM DAILY;
     Route: 042
     Dates: start: 20151111, end: 20151112
  5. POLARAMINE [Concomitant]
     Active Substance: DEXCHLORPHENIRAMINE MALEATE
     Indication: HYPERSENSITIVITY
     Route: 042
     Dates: start: 20151110, end: 20151111
  6. MABTHERA [Suspect]
     Active Substance: RITUXIMAB
     Indication: MANTLE CELL LYMPHOMA STAGE IV
     Route: 042
     Dates: start: 20151110, end: 20151111
  7. DEXAMETHASONE. [Concomitant]
     Active Substance: DEXAMETHASONE
     Indication: PRODUCT USED FOR UNKNOWN INDICATION
     Route: 042
     Dates: start: 20151110, end: 20151111
  8. VELCADE [Suspect]
     Active Substance: BORTEZOMIB
     Indication: MANTLE CELL LYMPHOMA STAGE IV
     Route: 058
     Dates: start: 20151110, end: 20151121
  9. METHYLPREDNISOLONE. [Concomitant]
     Active Substance: METHYLPREDNISOLONE
     Indication: PRODUCT USED FOR UNKNOWN INDICATION
     Route: 042
     Dates: start: 20151110, end: 20151111

REACTIONS (3)
  - Nausea [Recovered/Resolved]
  - Febrile bone marrow aplasia [Not Recovered/Not Resolved]
  - Off label use [Unknown]

NARRATIVE: CASE EVENT DATE: 201511
